FAERS Safety Report 11786230 (Version 3)
Quarter: 2016Q1

REPORT INFORMATION
  Report Type: Spontaneous
  Country: AU (occurrence: AU)
  Receive Date: 20151130
  Receipt Date: 20160304
  Transmission Date: 20160525
  Serious: Yes (Death)
  Sender: FDA-Public Use
  Company Number: AU-009507513-1511AUS014409

PATIENT
  Age: 69 Year

DRUGS (1)
  1. KEYTRUDA [Suspect]
     Active Substance: PEMBROLIZUMAB
     Indication: MESOTHELIOMA
     Dosage: UNK

REACTIONS (1)
  - Disease progression [Fatal]
